FAERS Safety Report 23322189 (Version 2)
Quarter: 2024Q1

REPORT INFORMATION
  Report Type: Spontaneous
  Country: US (occurrence: US)
  Receive Date: 20231220
  Receipt Date: 20240118
  Transmission Date: 20240410
  Serious: Yes (Other)
  Sender: FDA-Public Use
  Company Number: US-BRISTOL-MYERS SQUIBB COMPANY-2023-183958

PATIENT
  Age: 93 Year
  Sex: Female
  Weight: 74.39 kg

DRUGS (2)
  1. REVLIMID [Suspect]
     Active Substance: LENALIDOMIDE
     Indication: Plasma cell myeloma
     Route: 048
     Dates: start: 20210714
  2. REVLIMID [Suspect]
     Active Substance: LENALIDOMIDE
     Route: 048
     Dates: start: 20220122

REACTIONS (4)
  - Anaemia [Unknown]
  - Off label use [Unknown]
  - Full blood count decreased [Unknown]
  - Urinary tract infection [Unknown]
